FAERS Safety Report 9689506 (Version 1)
Quarter: 2013Q4

REPORT INFORMATION
  Report Type: Spontaneous
  Country: US (occurrence: US)
  Receive Date: 20131114
  Receipt Date: 20131114
  Transmission Date: 20140711
  Serious: No
  Sender: FDA-Public Use
  Company Number: US-009507513-1311USA004643

PATIENT
  Sex: Female

DRUGS (3)
  1. REBETOL [Suspect]
     Indication: HEPATITIS C
     Route: 048
  2. PEGINTERFERON ALFA-2B [Suspect]
     Indication: HEPATITIS C
  3. HYDROXYCHLOROQUINE SULFATE [Concomitant]
     Indication: PORPHYRIA NON-ACUTE
     Dosage: LOW-DOSE

REACTIONS (1)
  - Anaemia [Unknown]
